FAERS Safety Report 22731453 (Version 2)
Quarter: 2023Q4

REPORT INFORMATION
  Report Type: Spontaneous
  Country: US (occurrence: US)
  Receive Date: 20230720
  Receipt Date: 20231009
  Transmission Date: 20240110
  Serious: No
  Sender: FDA-Public Use
  Company Number: US-ABBVIE-5334311

PATIENT
  Sex: Male

DRUGS (3)
  1. LUPRON [Suspect]
     Active Substance: LEUPROLIDE ACETATE
     Indication: Prostatic specific antigen increased
     Route: 058
     Dates: start: 20190507
  2. ENZALUTAMIDE [Suspect]
     Active Substance: ENZALUTAMIDE
     Indication: Prostate cancer metastatic
     Dosage: FREQUENCY TEXT: ONCE DAILY (40 MG X 4 TABLETS
     Route: 048
     Dates: end: 202203
  3. ENZALUTAMIDE [Suspect]
     Active Substance: ENZALUTAMIDE
     Indication: Prostate cancer metastatic
     Dosage: FREQUENCY TEXT: ONCE DAILY (40 MG X 2 TABLETS)?START DATE TEXT: AUG-SEP-2022
     Route: 048

REACTIONS (6)
  - Spinal stenosis [Not Recovered/Not Resolved]
  - Muscular weakness [Recovering/Resolving]
  - Fatigue [Not Recovered/Not Resolved]
  - Lethargy [Not Recovered/Not Resolved]
  - Osteoarthritis [Unknown]
  - Back pain [Unknown]
